FAERS Safety Report 8991993 (Version 1)
Quarter: 2012Q4

REPORT INFORMATION
  Report Type: Report from Study
  Country: JP (occurrence: JP)
  Receive Date: 20121231
  Receipt Date: 20121231
  Transmission Date: 20130627
  Serious: Yes (Other)
  Sender: FDA-Public Use
  Company Number: JP-VERTEX PHARMACEUTICALS INC.-AE-2012-011127

PATIENT
  Age: 63 Year
  Sex: Female

DRUGS (19)
  1. VX-950 (TELAPREVIR) [Suspect]
     Indication: CHRONIC HEPATITIS C
     Dosage: 2250 mg, qd
     Route: 048
     Dates: start: 20120130, end: 20120311
  2. VX-950 (TELAPREVIR) [Suspect]
     Dosage: 1500 mg, qd
     Route: 048
     Dates: start: 20120312, end: 20120422
  3. RIBAVIRIN [Suspect]
     Indication: CHRONIC HEPATITIS C
     Dosage: 600 mg, qd
     Route: 048
     Dates: start: 20120130, end: 20120422
  4. RIBAVIRIN [Suspect]
     Dosage: 800 mg, qd
     Route: 048
     Dates: start: 20120423, end: 20120715
  5. PEGINTERFERON ALFA-2B [Suspect]
     Indication: CHRONIC HEPATITIS C
     Dosage: 1.5 ?g/kg, qw
     Route: 058
     Dates: start: 20120130, end: 20120709
  6. MERCAZOLE [Concomitant]
     Dosage: 5 mg, qd
     Route: 048
     Dates: end: 20120224
  7. MERCAZOLE [Concomitant]
     Dosage: 5 mg, qd
     Route: 048
     Dates: start: 20120524, end: 20120711
  8. MERCAZOLE [Concomitant]
     Dosage: 10 mg, qd
     Route: 048
     Dates: start: 20120712
  9. BIO-THREE [Concomitant]
     Dosage: 3 DF, qd
     Route: 048
     Dates: end: 20120219
  10. LIVALO [Concomitant]
     Dosage: 2 mg, qd
     Route: 048
  11. PURSENNID                          /00571902/ [Concomitant]
     Dosage: 24 mg, prn
     Route: 048
  12. MYSLEE [Concomitant]
     Dosage: 10 mg, qd
     Route: 048
     Dates: start: 20120130
  13. MUCOSTA [Concomitant]
     Dosage: 100 mg, qd
     Route: 048
     Dates: start: 20120130
  14. GASMOTIN [Concomitant]
     Dosage: 15 mg, qd
     Route: 048
     Dates: start: 20120202, end: 20120219
  15. GASMOTIN [Concomitant]
     Dosage: 15 mg, qd
     Route: 048
     Dates: start: 20120423
  16. MENTAX [Concomitant]
     Dosage: UNK, qd
     Route: 061
     Dates: start: 20120210
  17. SANCOBA [Concomitant]
     Dosage: UNK, tid
     Route: 031
     Dates: start: 20120416
  18. MAGLAX [Concomitant]
     Dosage: 1980 mg, qd
     Route: 048
     Dates: start: 20120507
  19. HYALEIN [Concomitant]
     Dosage: UNK, tid
     Route: 031
     Dates: start: 20120618

REACTIONS (1)
  - Retinopathy [Recovered/Resolved]
